FAERS Safety Report 25337430 (Version 1)
Quarter: 2025Q2

REPORT INFORMATION
  Report Type: Spontaneous
  Country: IR (occurrence: IR)
  Receive Date: 20250520
  Receipt Date: 20250520
  Transmission Date: 20250717
  Serious: Yes (Hospitalization, Other)
  Sender: NOVARTIS
  Company Number: IR-002147023-NVSC2025IR080652

PATIENT
  Sex: Male

DRUGS (1)
  1. CYCLOSPORINE [Suspect]
     Active Substance: CYCLOSPORINE
     Indication: Product used for unknown indication
     Route: 065

REACTIONS (13)
  - Humoral immune defect [Unknown]
  - Thrombocytopenia [Unknown]
  - Platelet disorder [Unknown]
  - Coagulopathy [Unknown]
  - Urinary tract disorder [Unknown]
  - Musculoskeletal disorder [Unknown]
  - Visual impairment [Unknown]
  - Nervous system disorder [Unknown]
  - Paraesthesia [Unknown]
  - Metabolic disorder [Unknown]
  - Malnutrition [Unknown]
  - Hyperglycaemia [Unknown]
  - Amnesia [Unknown]
